FAERS Safety Report 6599965-1 (Version None)
Quarter: 2010Q1

REPORT INFORMATION
  Report Type: 
  Country: None (occurrence: None)
  Receive Date: 20100224
  Receipt Date: 20100210
  Transmission Date: 20100710
  Serious: Yes (Other)
  Sender: FDA-Public Use
  Company Number: TR-MYLANLABS-2010S1002142

PATIENT
  Age: 6 Decade
  Sex: Male

DRUGS (8)
  1. CYCLOPHOSPHAMIDE [Suspect]
     Indication: WEGENER'S GRANULOMATOSIS
     Dosage: 2 MG/KG
     Dates: start: 19990101
  2. CYCLOPHOSPHAMIDE [Suspect]
  3. CYCLOPHOSPHAMIDE [Suspect]
     Dosage: 150 MG/DAY
  4. AZATHIOPRINE [Suspect]
     Indication: WEGENER'S GRANULOMATOSIS
  5. AZATHIOPRINE [Suspect]
  6. METHYLPREDNISOLONE 4MG TAB [Concomitant]
     Indication: WEGENER'S GRANULOMATOSIS
     Dosage: THREE PULSES OF 1G DAILY DECREASED TO 1 G/DAY OVER A FEW DAYS.
     Route: 042
     Dates: start: 19990101
  7. METHYLPREDNISOLONE 4MG TAB [Concomitant]
     Dosage: 1 G/DAY (DECREASED FROM THREE PULSES OF 1G DAILY)
     Route: 042
  8. METHYLPREDNISOLONE 4MG TAB [Concomitant]

REACTIONS (1)
  - RENAL CELL CARCINOMA [None]
